FAERS Safety Report 17499229 (Version 2)
Quarter: 2020Q1

REPORT INFORMATION
  Report Type: Report from Study
  Country: AU (occurrence: AU)
  Receive Date: 20200305
  Receipt Date: 20200317
  Transmission Date: 20200409
  Serious: Yes (Other)
  Sender: FDA-Public Use
  Company Number: AU-REGENERON PHARMACEUTICALS, INC.-2020-22652

PATIENT

DRUGS (1)
  1. EYLEA [Suspect]
     Active Substance: AFLIBERCEPT
     Indication: NEOVASCULAR AGE-RELATED MACULAR DEGENERATION
     Dosage: UNK
     Route: 031
     Dates: start: 20190816

REACTIONS (3)
  - Anaesthetic complication neurological [Unknown]
  - Pollakiuria [Recovered/Resolved]
  - Radiation fibrosis [Recovered/Resolved]

NARRATIVE: CASE EVENT DATE: 20200227
